FAERS Safety Report 8531372-4 (Version None)
Quarter: 2012Q3

REPORT INFORMATION
  Report Type: 
  Country: None (occurrence: None)
  Receive Date: 20120723
  Receipt Date: 20120712
  Transmission Date: 20120928
  Serious: Yes (Hospitalization, Other)
  Sender: FDA-Public Use
  Company Number: US-ACTELION-A-NJ2012-68857

PATIENT

DRUGS (2)
  1. ASPIRIN [Concomitant]
  2. TRACLEER [Suspect]
     Indication: PULMONARY ARTERIAL HYPERTENSION
     Dosage: UNK
     Route: 048

REACTIONS (7)
  - SINUS CONGESTION [None]
  - DIALYSIS [None]
  - DIZZINESS EXERTIONAL [None]
  - PNEUMONIA [None]
  - SYNCOPE [None]
  - DYSPHONIA [None]
  - LACERATION [None]
